FAERS Safety Report 21615361 (Version 2)
Quarter: 2023Q1

REPORT INFORMATION
  Report Type: Spontaneous
  Country: JP (occurrence: None)
  Receive Date: 20221118
  Receipt Date: 20230126
  Transmission Date: 20230418
  Serious: Yes (Death, Life-Threatening)
  Sender: FDA-Public Use
  Company Number: 2022A381586

PATIENT
  Age: 79 Year
  Sex: Female
  Weight: 43 kg

DRUGS (46)
  1. ONDEXXYA [Suspect]
     Active Substance: ANDEXANET ALFA
     Indication: Haemorrhage
     Dosage: DOSE UNKNOWN
     Route: 042
     Dates: start: 20221110, end: 20221110
  2. AZILSARTAN KAMEDOXOMIL [Concomitant]
     Active Substance: AZILSARTAN KAMEDOXOMIL
     Dosage: DOSE UNKNOWN
  3. NIFEDIPINE [Concomitant]
     Active Substance: NIFEDIPINE
     Dosage: DOSE UNKNOWN
     Route: 048
  4. MAGNESIUM OXIDE [Concomitant]
     Active Substance: MAGNESIUM OXIDE
     Dosage: DOSE UNKNOWN
     Route: 065
  5. LANSOPRAZOLE [Concomitant]
     Active Substance: LANSOPRAZOLE
     Dosage: DOSE UNKNOWN
     Route: 048
  6. FLUVOXAMINE MALEATE [Concomitant]
     Active Substance: FLUVOXAMINE MALEATE
     Dosage: DOSE UNKNOWN
     Route: 065
  7. SPIRONOLACTONE [Concomitant]
     Active Substance: SPIRONOLACTONE
     Dosage: DOSE UNKNOWN
     Route: 065
  8. FUROSEMIDE [Concomitant]
     Active Substance: FUROSEMIDE
     Dosage: DOSE UNKNOWN
     Route: 065
  9. FUROSEMIDE [Concomitant]
     Active Substance: FUROSEMIDE
     Dosage: INTRAOPERATIVE, DOSE UNKNOWN
     Route: 065
     Dates: start: 20221110
  10. EMPAGLIFLOZIN [Concomitant]
     Active Substance: EMPAGLIFLOZIN
     Dosage: DOSE UNKNOWN
     Route: 065
  11. TOLVAPTAN [Concomitant]
     Active Substance: TOLVAPTAN
     Dosage: DOSE UNKNOWN
     Route: 065
  12. TRAMADOL HYDROCHLORIDE [Concomitant]
     Active Substance: TRAMADOL HYDROCHLORIDE
     Dosage: DOSE UNKNOWN
     Route: 065
  13. ACETAMINOPHEN [Concomitant]
     Active Substance: ACETAMINOPHEN
     Dosage: DOSE UNKNOWN
     Route: 065
  14. MIYA-BM [Concomitant]
     Active Substance: CLOSTRIDIUM BUTYRICUM SPORES STRAIN M-55
     Dosage: DOSE UNKNOWN
     Route: 065
  15. ATROPINE [Concomitant]
     Active Substance: ATROPINE
     Dosage: INTRAOPERATIVE, DOSE UNKNOWN
     Route: 065
     Dates: start: 20221110
  16. HEPARIN [Concomitant]
     Active Substance: HEPARIN SODIUM
     Dosage: INTRAOPERATIVE, DOSE UNKNOWN
     Route: 065
     Dates: start: 20221110
  17. SEVOFLURANE [Concomitant]
     Active Substance: SEVOFLURANE
     Dosage: INTRAOPERATIVE, DOSE UNKNOWN
     Route: 065
     Dates: start: 20221110
  18. PROPOFOL [Concomitant]
     Active Substance: PROPOFOL
     Dosage: INTRAOPERATIVE, DOSE UNKNOWN
     Route: 065
     Dates: start: 20221110
  19. REMIFENTANIL [Concomitant]
     Active Substance: REMIFENTANIL
     Dosage: INTRAOPERATIVE, DOSE UNKNOWN
     Route: 065
     Dates: start: 20221110
  20. ROCURONIUM BROMIDE [Concomitant]
     Active Substance: ROCURONIUM BROMIDE
     Dosage: INTRAOPERATIVE, DOSE UNKNOWN
     Route: 065
     Dates: start: 20221110
  21. PITRESSIN [Concomitant]
     Active Substance: VASOPRESSIN
     Dosage: INTRAOPERATIVE, DOSE UNKNOWN
     Route: 065
     Dates: start: 20221110
  22. EPINEPHRINE [Concomitant]
     Active Substance: EPINEPHRINE
     Dosage: INTRAOPERATIVE, DOSE UNKNOWN
     Route: 065
     Dates: start: 20221110
  23. NOREPINEPHRINE [Concomitant]
     Active Substance: NOREPINEPHRINE
     Dosage: INTRAOPERATIVE, DOSE UNKNOWN
     Route: 065
     Dates: start: 20221110
  24. DOBUTAMINE [Concomitant]
     Active Substance: DOBUTAMINE HYDROCHLORIDE
     Dosage: INTRAOPERATIVE, DOSE UNKNOWN
     Route: 065
     Dates: start: 20221110
  25. DOPAMINE [Concomitant]
     Active Substance: DOPAMINE HYDROCHLORIDE
     Dosage: INTRAOPERATIVE, DOSE UNKNOWN
     Route: 065
     Dates: start: 20221110
  26. EPHEDRINE HYDROCHLORIDE [Concomitant]
     Active Substance: EPHEDRINE HYDROCHLORIDE
     Dosage: INTRAOPERATIVE, DOSE UNKNOWN
     Route: 065
     Dates: start: 20221110
  27. NICARDIPINE HYDROCHLORIDE [Concomitant]
     Active Substance: NICARDIPINE HYDROCHLORIDE
     Dosage: INTRAOPERATIVE, DOSE UNKNOWN
     Route: 065
     Dates: start: 20221110
  28. PHENYLEPHRINE HYDROCHLORIDE [Concomitant]
     Active Substance: PHENYLEPHRINE HYDROCHLORIDE
     Dosage: INTRAOPERATIVE, DOSE UNKNOWN
     Route: 065
     Dates: start: 20221110
  29. DEXMEDETOMIDINE HYDROCHLORIDE [Concomitant]
     Active Substance: DEXMEDETOMIDINE HYDROCHLORIDE
     Dosage: INTRAOPERATIVE, DOSE UNKNOWN
     Route: 065
     Dates: start: 20221110
  30. MILRINONE [Concomitant]
     Active Substance: MILRINONE
     Dosage: INTRAOPERATIVE, DOSE UNKNOWN
     Route: 065
     Dates: start: 20221110
  31. NICORANDIL [Concomitant]
     Active Substance: NICORANDIL
     Dosage: INTRAOPERATIVE, DOSE UNKNOWN
     Route: 065
     Dates: start: 20221110
  32. CARPERITIDE(GENETICAL RECOMBINATION) [Concomitant]
     Dosage: INTRAOPERATIVE, DOSE UNKNOWN
     Route: 065
     Dates: start: 20221110
  33. TRANEXAMIC ACID [Concomitant]
     Active Substance: TRANEXAMIC ACID
     Dosage: INTRAOPERATIVE, DOSE UNKNOWN
     Route: 065
     Dates: start: 20221110
  34. NAFAMOSTAT [Concomitant]
     Active Substance: NAFAMOSTAT
     Dosage: INTRAOPERATIVE, DOSE UNKNOWN
     Route: 065
     Dates: start: 20221110
  35. CEFAZOLIN SODIUM [Concomitant]
     Active Substance: CEFAZOLIN SODIUM
     Dosage: INTRAOPERATIVE, DOSE UNKNOWN
     Route: 065
     Dates: start: 20221110
  36. ANHYDROUS DEXTROSE\CALCIUM CHLORIDE [Concomitant]
     Active Substance: ANHYDROUS DEXTROSE\CALCIUM CHLORIDE
     Dosage: INTRAOPERATIVE, DOSE UNKNOWN
     Route: 065
     Dates: start: 20221110
  37. VOLUVEN [Concomitant]
     Active Substance: HYDROXYETHYL STARCH 130/0.4
     Dosage: INTRAOPERATIVE, DOSE UNKNOWN
     Route: 065
     Dates: start: 20221110
  38. FIBRINOGEN HT [Concomitant]
     Dosage: INTRAOPERATIVE, DOSE UNKNOWN
     Route: 065
     Dates: start: 20221110
  39. PROTAMINE SULFATE [Concomitant]
     Active Substance: PROTAMINE SULFATE
     Dosage: INTRAOPERATIVE, DOSE UNKNOWN
     Route: 065
     Dates: start: 20221110
  40. FENTANYL [Concomitant]
     Active Substance: FENTANYL
     Dosage: INTRAOPERATIVE, DOSE UNKNOWN
     Route: 065
     Dates: start: 20221110
  41. SODIUM BICARBONATE [Concomitant]
     Active Substance: SODIUM BICARBONATE
     Dosage: INTRAOPERATIVE, DOSE UNKNOWN
     Route: 065
     Dates: start: 20221110
  42. XYLOCAINE [Concomitant]
     Active Substance: LIDOCAINE HYDROCHLORIDE
     Dosage: INTRAOPERATIVE, DOSE UNKNOWN
     Route: 065
     Dates: start: 20221110
  43. MIOTECTER [Concomitant]
     Dosage: INTRAOPERATIVE, DOSE UNKNOWN
     Route: 065
     Dates: start: 20221110
  44. MANNITOL [Concomitant]
     Active Substance: MANNITOL
     Dosage: INTRAOPERATIVE, DOSE UNKNOWN
     Route: 065
     Dates: start: 20221110
  45. DILTIAZEM HYDROCHLORIDE [Concomitant]
     Active Substance: DILTIAZEM HYDROCHLORIDE
     Dosage: INTRAOPERATIVE, DOSE UNKNOWN
     Route: 065
     Dates: start: 20221110
  46. ANTITHROMBIN GAMMA [Concomitant]
     Dosage: INTRAOPERATIVE, DOSE UNKNOWN
     Route: 065
     Dates: start: 20221110

REACTIONS (4)
  - Thrombosis [Fatal]
  - Cardiac arrest [Fatal]
  - Respiratory disorder [Fatal]
  - Blood pressure decreased [Unknown]

NARRATIVE: CASE EVENT DATE: 20221110
